FAERS Safety Report 8883678 (Version 3)
Quarter: 2015Q3

REPORT INFORMATION
  Report Type: Spontaneous
  Country: AU (occurrence: AU)
  Receive Date: 20121102
  Receipt Date: 20150707
  Transmission Date: 20151125
  Serious: Yes (Death, Hospitalization)
  Sender: FDA-Public Use
  Company Number: AU-ASTRAZENECA-2010SE15515

PATIENT
  Age: 98 Year
  Sex: Male

DRUGS (1)
  1. ZOLADEX [Suspect]
     Active Substance: GOSERELIN ACETATE
     Indication: PROSTATE CANCER
     Route: 058
     Dates: start: 20080531

REACTIONS (4)
  - Pneumonia [Fatal]
  - Hot flush [Not Recovered/Not Resolved]
  - Red blood cell count decreased [Recovered/Resolved]
  - Cardio-respiratory distress [Fatal]

NARRATIVE: CASE EVENT DATE: 200805
